FAERS Safety Report 9158176 (Version 1)
Quarter: 2013Q1

REPORT INFORMATION
  Report Type: Spontaneous
  Country: IT (occurrence: IT)
  Receive Date: 20130312
  Receipt Date: 20130312
  Transmission Date: 20140127
  Serious: Yes (Other)
  Sender: FDA-Public Use
  Company Number: IT-JHP PHARMACEUTICALS, LLC-JHP201300118

PATIENT
  Age: 77 Year
  Sex: Male

DRUGS (1)
  1. ADRENALIN [Suspect]
     Indication: CARDIAC ARREST
     Dosage: 3 MG, UNK

REACTIONS (1)
  - Stress cardiomyopathy [Recovered/Resolved]
